FAERS Safety Report 16900949 (Version 3)
Quarter: 2020Q1

REPORT INFORMATION
  Report Type: Report from Study
  Country: DE (occurrence: DE)
  Receive Date: 20191009
  Receipt Date: 20200108
  Transmission Date: 20200409
  Serious: No
  Sender: FDA-Public Use
  Company Number: DE-GILEAD-2019-0432351

PATIENT
  Sex: Male
  Weight: 79 kg

DRUGS (9)
  1. VENLAFAXINE [Concomitant]
     Active Substance: VENLAFAXINE HYDROCHLORIDE
     Indication: NEUROPSYCHIATRIC SYNDROME
     Route: 048
     Dates: start: 20181220
  2. TRIMIPRAMINE [Concomitant]
     Active Substance: TRIMIPRAMINE
     Indication: NEUROPSYCHIATRIC SYNDROME
     Route: 048
     Dates: start: 20190122
  3. AMITRIPTYLINE [Concomitant]
     Active Substance: AMITRIPTYLINE
     Indication: NECK PAIN
     Route: 048
     Dates: start: 20181026
  4. IBUPROFEN. [Concomitant]
     Active Substance: IBUPROFEN
     Indication: POST-TRAUMATIC STRESS DISORDER
     Route: 048
  5. SILDENAFIL. [Concomitant]
     Active Substance: SILDENAFIL
     Indication: ERECTILE DYSFUNCTION
     Route: 048
     Dates: start: 20170801
  6. BICTEGRAVIR W/EMTRICITABINE/TENOFOVIR ALAFENAMIDE [Suspect]
     Active Substance: BICTEGRAVIR\EMTRICITABINE\TENOFOVIR ALAFENAMIDE
     Indication: HIV INFECTION
     Dosage: 1 DOSAGE FORM, QD
     Route: 048
     Dates: start: 20181030
  7. PANTOZOLE [Concomitant]
     Active Substance: PANTOPRAZOLE SODIUM
     Indication: GASTRITIS
     Route: 048
     Dates: start: 2010
  8. ZOPICLONE [Concomitant]
     Active Substance: ZOPICLONE
     Indication: POST-TRAUMATIC STRESS DISORDER
     Route: 048
     Dates: start: 20170330
  9. METAMIZOL [Concomitant]
     Active Substance: METAMIZOLE SODIUM
     Indication: PARAESTHESIA
     Route: 048
     Dates: start: 20170228

REACTIONS (1)
  - Deafness [Not Recovered/Not Resolved]

NARRATIVE: CASE EVENT DATE: 20190615
